FAERS Safety Report 5286788-9 (Version None)
Quarter: 2007Q2

REPORT INFORMATION
  Report Type: 
  Country: None (occurrence: None)
  Receive Date: 20070404
  Receipt Date: 20070330
  Transmission Date: 20071010
  Serious: Yes (Death, Other)
  Sender: FDA-Public Use
  Company Number: 2006UW24436

PATIENT
  Age: 16447 Day
  Sex: Female

DRUGS (3)
  1. SEROQUEL [Suspect]
     Route: 048
     Dates: start: 20001102, end: 20040202
  2. ABILIFY [Concomitant]
  3. ZYPREXA [Concomitant]

REACTIONS (2)
  - DEATH [None]
  - PANCREATITIS [None]
